FAERS Safety Report 26116485 (Version 1)
Quarter: 2025Q4

REPORT INFORMATION
  Report Type: Spontaneous
  Country: US (occurrence: None)
  Receive Date: 20251202
  Receipt Date: 20251202
  Transmission Date: 20260118
  Serious: Yes (Death)
  Sender: FDA-CTU
  Company Number: None

PATIENT
  Sex: Male

DRUGS (11)
  1. BOTOX [Suspect]
     Active Substance: ONABOTULINUMTOXINA
     Indication: Facial spasm
     Dosage: ADMINISTER UP TO 100 UNITS IN THE MUSCLE INTO RIGHT PERIOCULAR EVERY 90 DAYS??
     Route: 030
     Dates: start: 20220929
  2. ASPIRIN TAB 325MG [Concomitant]
  3. COQ10 CAP 100MG [Concomitant]
  4. D3 TAB 2000UNIT [Concomitant]
  5. EZETIMIBE [Concomitant]
     Active Substance: EZETIMIBE
  6. FAMOTIDINE TAB 40MG [Concomitant]
  7. GLUCO/CHONDR CAP COMPLEX [Concomitant]
  8. JARDIANCE [Concomitant]
     Active Substance: EMPAGLIFLOZIN
  9. LANSOPRAZOLE [Concomitant]
     Active Substance: LANSOPRAZOLE
  10. LEVOTHYROXIN TAB 75MCG [Concomitant]
  11. METFORMIN [Concomitant]
     Active Substance: METFORMIN HYDROCHLORIDE

REACTIONS (1)
  - Death [None]
